FAERS Safety Report 14141201 (Version 2)
Quarter: 2017Q4

REPORT INFORMATION
  Report Type: Spontaneous
  Country: IT (occurrence: IT)
  Receive Date: 20171030
  Receipt Date: 20171102
  Transmission Date: 20180321
  Serious: Yes (Death, Hospitalization, Other)
  Sender: FDA-Public Use
  Company Number: IT-PFIZER INC-2017464073

PATIENT
  Age: 69 Year
  Sex: Male

DRUGS (8)
  1. ALLOPURINOL. [Concomitant]
     Active Substance: ALLOPURINOL
     Dosage: 300 MG, UNK
     Route: 048
  2. OLPRESS [Concomitant]
     Active Substance: OLMESARTAN MEDOXOMIL
     Dosage: UNK
  3. INEGY [Concomitant]
     Active Substance: EZETIMIBE\SIMVASTATIN
     Dosage: 10 MG, UNK
     Route: 048
  4. ENOXAPARINA [Concomitant]
     Active Substance: ENOXAPARIN
     Dosage: 4000 IU, UNK
     Route: 058
  5. AMLODIPINE [Concomitant]
     Active Substance: AMLODIPINE BESYLATE
     Dosage: UNK
  6. FUROSEMIDE. [Concomitant]
     Active Substance: FUROSEMIDE
     Dosage: 25 MG, UNK
     Route: 048
  7. SUTENT [Suspect]
     Active Substance: SUNITINIB MALATE
     Indication: METASTATIC RENAL CELL CARCINOMA
     Dosage: 50 MG, CYCLIC (DAILY FOR 4 WEEKS FOLLOWED BY 2 WEEKS OFF )
     Route: 048
     Dates: start: 20170830, end: 20170923
  8. METFORMIN [Concomitant]
     Active Substance: METFORMIN HYDROCHLORIDE
     Dosage: UNK

REACTIONS (7)
  - Febrile neutropenia [Fatal]
  - Mucosal inflammation [Unknown]
  - Pulmonary embolism [Fatal]
  - Sepsis [Fatal]
  - Cardiomegaly [Unknown]
  - Pericardial effusion [Unknown]
  - Leukopenia [Fatal]

NARRATIVE: CASE EVENT DATE: 20170923
